FAERS Safety Report 20311037 (Version 1)
Quarter: 2022Q1

REPORT INFORMATION
  Report Type: Spontaneous
  Country: US (occurrence: None)
  Receive Date: 20220107
  Receipt Date: 20220107
  Transmission Date: 20220423
  Serious: Yes (Other)
  Sender: FDA-Public Use
  Company Number: None

PATIENT
  Age: 34 Year
  Sex: Female

DRUGS (9)
  1. TACROLIMUS [Suspect]
     Active Substance: TACROLIMUS
     Indication: Bone marrow transplant
     Dosage: FREQUENCY : TWICE A DAY;?
     Route: 048
     Dates: start: 20210909
  2. VALACYCLOVIR [Concomitant]
     Active Substance: VALACYCLOVIR HYDROCHLORIDE
     Dates: start: 20210909
  3. PREDNISONE [Concomitant]
     Active Substance: PREDNISONE
     Dates: start: 20210909
  4. DAPSONE [Concomitant]
     Active Substance: DAPSONE
     Dates: start: 20210909
  5. PANTOPRAZOLE SODIUM [Concomitant]
     Active Substance: PANTOPRAZOLE SODIUM
     Dates: start: 20210909
  6. vitamine D 50,000iu [Concomitant]
  7. ZOLPIDEM [Concomitant]
     Active Substance: ZOLPIDEM TARTRATE
  8. TRAMADOL [Concomitant]
     Active Substance: TRAMADOL
  9. PREVYMIS [Concomitant]
     Active Substance: LETERMOVIR

REACTIONS (3)
  - Tremor [None]
  - Headache [None]
  - Intentional product use issue [None]

NARRATIVE: CASE EVENT DATE: 20211107
